FAERS Safety Report 9681654 (Version 10)
Quarter: 2014Q4

REPORT INFORMATION
  Report Type: Report from Study
  Country: US (occurrence: US)
  Receive Date: 20131111
  Receipt Date: 20141201
  Transmission Date: 20150529
  Serious: Yes (Death, Hospitalization, Other)
  Sender: FDA-Public Use
  Company Number: US-BAYER-2013-115723

PATIENT
  Age: 58 Year
  Sex: Female

DRUGS (5)
  1. STIVARGA [Suspect]
     Active Substance: REGORAFENIB
     Indication: COLON CANCER
     Dosage: 120 MG DAILY
     Route: 048
     Dates: start: 20130619, end: 20130913
  2. STIVARGA [Suspect]
     Active Substance: REGORAFENIB
     Indication: GASTROINTESTINAL STROMAL TUMOUR
     Dosage: 40 MG, QD
     Route: 048
     Dates: start: 20130622
  3. STIVARGA [Suspect]
     Active Substance: REGORAFENIB
     Indication: COLON CANCER
     Dosage: 40 MG DAILY
     Route: 048
  4. STIVARGA [Suspect]
     Active Substance: REGORAFENIB
     Indication: COLON CANCER
     Dosage: 80 MG DAILY
     Route: 048
     Dates: start: 20130914, end: 20131104
  5. STIVARGA [Suspect]
     Active Substance: REGORAFENIB
     Indication: COLON CANCER
     Dosage: 80 MG, QD
     Route: 048

REACTIONS (18)
  - Constipation [None]
  - Oral mucosal blistering [None]
  - Rectal haemorrhage [None]
  - Hospitalisation [None]
  - Vomiting [Recovered/Resolved]
  - Fatigue [None]
  - Anxiety [None]
  - Diarrhoea [None]
  - Malaise [None]
  - Blister [None]
  - Influenza like illness [None]
  - Colitis [None]
  - Dehydration [None]
  - Diarrhoea [None]
  - Diarrhoea [None]
  - Diarrhoea [None]
  - Death [Fatal]
  - Blister [None]

NARRATIVE: CASE EVENT DATE: 20130621
